FAERS Safety Report 17939567 (Version 1)
Quarter: 2020Q2

REPORT INFORMATION
  Report Type: Report from Study
  Country: DO (occurrence: DO)
  Receive Date: 20200624
  Receipt Date: 20200624
  Transmission Date: 20200714
  Serious: Yes (Other)
  Sender: FDA-Public Use
  Company Number: NVSC2020DO176117

PATIENT
  Age: 53 Year
  Sex: Female

DRUGS (2)
  1. VYMADA [Suspect]
     Active Substance: SACUBITRIL\VALSARTAN
     Indication: CARDIAC FAILURE
     Dosage: 50 MG, BID
     Route: 065
  2. VYMADA [Suspect]
     Active Substance: SACUBITRIL\VALSARTAN
     Dosage: 50 MG, QD(START DATE:04 MONTHS AGO)
     Route: 065

REACTIONS (4)
  - Memory impairment [Unknown]
  - Angina unstable [Unknown]
  - Incorrect dose administered [Unknown]
  - Ejection fraction decreased [Unknown]
